FAERS Safety Report 4769942-1 (Version None)
Quarter: 2005Q3

REPORT INFORMATION
  Report Type: 
  Country: None (occurrence: None)
  Receive Date: 20050914
  Receipt Date: 20050914
  Transmission Date: 20060218
  Serious: Yes (Hospitalization, Other)
  Sender: FDA-Public Use
  Company Number: None

PATIENT
  Age: 62 Year
  Sex: Male
  Weight: 114.3 kg

DRUGS (2)
  1. CIPROFLOXACIN [Suspect]
     Indication: INFECTION
     Dosage: CIPRO 250 MG BID PO
     Route: 048
     Dates: start: 20050706, end: 20050708
  2. QUETIAPINE FUMARATE [Suspect]
     Indication: DEPRESSION

REACTIONS (1)
  - RASH [None]
